FAERS Safety Report 13041596 (Version 1)
Quarter: 2016Q4

REPORT INFORMATION
  Report Type: Spontaneous
  Country: US (occurrence: US)
  Receive Date: 20161219
  Receipt Date: 20161219
  Transmission Date: 20170207
  Serious: No
  Sender: FDA-Public Use
  Company Number: US-ROCHE-1329907

PATIENT
  Age: 42 Year
  Sex: Female

DRUGS (2)
  1. ZELBORAF [Suspect]
     Active Substance: VEMURAFENIB
     Dosage: 5 TABLETS PER DAY
     Route: 048
  2. ZELBORAF [Suspect]
     Active Substance: VEMURAFENIB
     Indication: METASTATIC MALIGNANT MELANOMA
     Dosage: 8 TABLETS PER DAY FOR APPROXIMATELY 6 WEEKS.
     Route: 048
     Dates: start: 201303

REACTIONS (2)
  - Photosensitivity reaction [Unknown]
  - Skin disorder [Unknown]
